FAERS Safety Report 5433926-0 (Version None)
Quarter: 2007Q3

REPORT INFORMATION
  Report Type: 
  Country: None (occurrence: None)
  Receive Date: 20070831
  Receipt Date: 20070724
  Transmission Date: 20080115
  Serious: No
  Sender: FDA-Public Use
  Company Number: A0663611A

PATIENT
  Age: 48 Year
  Sex: Female

DRUGS (2)
  1. ALLI [Suspect]
     Route: 048
     Dates: start: 20070628, end: 20070708
  2. SSRI [Concomitant]
     Indication: DEPRESSION

REACTIONS (2)
  - ANXIETY [None]
  - SLEEP DISORDER [None]
